FAERS Safety Report 7920353-7 (Version None)
Quarter: 2011Q4

REPORT INFORMATION
  Report Type: 
  Country: None (occurrence: None)
  Receive Date: 20111117
  Receipt Date: 20111108
  Transmission Date: 20120403
  Serious: Yes (Other)
  Sender: FDA-Public Use
  Company Number: UG-SANOFI-AVENTIS-2011SA074187

PATIENT

DRUGS (7)
  1. RIFAMPICIN [Suspect]
     Indication: TUBERCULOSIS
     Route: 065
  2. ETHAMBUTOL HYDROCHLORIDE [Suspect]
     Indication: TUBERCULOSIS
     Route: 065
  3. ABACAVIR [Suspect]
     Indication: ANTIRETROVIRAL THERAPY
     Dosage: 1 DOSE WAS OBSERVED BY STUDY STAFF AND ONE SELF ADMINISTERED
     Route: 065
  4. LAMIVUDINE (EPIVIR HBV) [Suspect]
     Indication: ANTIRETROVIRAL THERAPY
     Dosage: 1 DOSE WAS OBSERVED BY STUDY STAFF AND ONE SELF ADMINISTERED
     Route: 065
  5. ISONIAZID [Suspect]
     Indication: TUBERCULOSIS
     Route: 065
  6. ZIDOVUDINE [Suspect]
     Indication: ANTIRETROVIRAL THERAPY
     Dosage: 1 DOSE WAS OBSERVED BY STUDY STAFF AND ONE SELF ADMINISTERED
     Route: 065
  7. PYRAZINAMIDE [Suspect]
     Indication: TUBERCULOSIS
     Route: 065

REACTIONS (15)
  - ASCITES [None]
  - LOBAR PNEUMONIA [None]
  - ARRHYTHMIA [None]
  - DIARRHOEA [None]
  - PEPTIC ULCER [None]
  - HYPERTENSION [None]
  - ANAEMIA [None]
  - CARDIAC FAILURE CONGESTIVE [None]
  - MOTOR NEURONE DISEASE [None]
  - NEUTROPENIA [None]
  - HYPOTENSION [None]
  - MENTAL DISORDER [None]
  - ASPARTATE AMINOTRANSFERASE INCREASED [None]
  - RASH [None]
  - THROMBOCYTOPENIA [None]
